FAERS Safety Report 7792943-6 (Version None)
Quarter: 2011Q3

REPORT INFORMATION
  Report Type: 
  Country: None (occurrence: None)
  Receive Date: 20110930
  Receipt Date: 20110930
  Transmission Date: 20111222
  Serious: Yes (Hospitalization, Disabling)
  Sender: FDA-Public Use
  Company Number: None

PATIENT
  Sex: Male
  Weight: 70.7611 kg

DRUGS (2)
  1. PROZAC [Suspect]
  2. ELAVIL [Suspect]

REACTIONS (4)
  - PRODUCT COATING ISSUE [None]
  - CONSTIPATION [None]
  - HEADACHE [None]
  - GASTRIC HAEMORRHAGE [None]
